FAERS Safety Report 15889774 (Version 1)
Quarter: 2019Q1

REPORT INFORMATION
  Report Type: Spontaneous
  Country: GB (occurrence: GB)
  Receive Date: 20190130
  Receipt Date: 20190130
  Transmission Date: 20190417
  Serious: Yes (Other)
  Sender: FDA-Public Use
  Company Number: GB-GLAXOSMITHKLINE-GB2019GSK015601

PATIENT
  Age: 84 Year
  Sex: Male

DRUGS (1)
  1. COMBODART [Suspect]
     Active Substance: DUTASTERIDE\TAMSULOSIN
     Indication: BLADDER DISORDER
     Dosage: UNK
     Dates: start: 201901

REACTIONS (7)
  - Urinary retention [Not Recovered/Not Resolved]
  - Eczema [Not Recovered/Not Resolved]
  - Testicular swelling [Not Recovered/Not Resolved]
  - Abdominal discomfort [Not Recovered/Not Resolved]
  - Anal incontinence [Not Recovered/Not Resolved]
  - Urinary hesitation [Not Recovered/Not Resolved]
  - Scrotal irritation [Not Recovered/Not Resolved]

NARRATIVE: CASE EVENT DATE: 201901
